FAERS Safety Report 25408008 (Version 2)
Quarter: 2025Q3

REPORT INFORMATION
  Report Type: Spontaneous
  Country: US (occurrence: US)
  Receive Date: 20250606
  Receipt Date: 20250725
  Transmission Date: 20251020
  Serious: Yes (Hospitalization, Other)
  Sender: Alora Pharma
  Company Number: US-OSMOTICA PHARMACEUTICALS-2025ALO02247

PATIENT
  Sex: Male

DRUGS (5)
  1. HYDROMORPHONE HYDROCHLORIDE [Suspect]
     Active Substance: HYDROMORPHONE HYDROCHLORIDE
     Route: 064
  2. FLUOXETINE [Suspect]
     Active Substance: FLUOXETINE HYDROCHLORIDE
     Route: 064
  3. QUETIAPINE [Suspect]
     Active Substance: QUETIAPINE
     Route: 064
  4. CLONAZEPAM [Suspect]
     Active Substance: CLONAZEPAM
     Route: 064
  5. OXYCODONE [Suspect]
     Active Substance: OXYCODONE
     Route: 064

REACTIONS (4)
  - Hypertonia [Recovered/Resolved]
  - Decerebrate posture [Recovered/Resolved]
  - Drug withdrawal syndrome neonatal [Recovered/Resolved]
  - Foetal exposure during pregnancy [Recovered/Resolved]
